FAERS Safety Report 5216740-0 (Version None)
Quarter: 2007Q1

REPORT INFORMATION
  Report Type: 
  Country: None (occurrence: None)
  Receive Date: 20070118
  Receipt Date: 20070104
  Transmission Date: 20070707
  Serious: Yes (Hospitalization, Disabling)
  Sender: FDA-Public Use
  Company Number: FABR-11806

PATIENT
  Age: 48 Year
  Sex: Male
  Weight: 57 kg

DRUGS (4)
  1. FABRAZYME [Suspect]
     Indication: FABRY'S DISEASE
     Dosage: 1.22 MG/KG Q2WKS IV
     Route: 042
     Dates: start: 20061201
  2. FABRAZYME [Suspect]
     Indication: FABRY'S DISEASE
     Dosage: 1 MG/KG Q2WKS IV
     Route: 042
     Dates: start: 20060713, end: 20061101
  3. ASPIRIN [Concomitant]
  4. CARBAMAZEPINE [Concomitant]

REACTIONS (13)
  - AGGRESSION [None]
  - ANOREXIA [None]
  - ANXIETY [None]
  - CONFUSIONAL STATE [None]
  - DEPRESSION [None]
  - DUODENITIS [None]
  - GASTRITIS [None]
  - HALLUCINATION [None]
  - HEADACHE [None]
  - NAUSEA [None]
  - PANIC ATTACK [None]
  - VOMITING [None]
  - WEIGHT DECREASED [None]
